FAERS Safety Report 25766126 (Version 1)
Quarter: 2025Q3

REPORT INFORMATION
  Report Type: Spontaneous
  Country: US (occurrence: US)
  Receive Date: 20250905
  Receipt Date: 20250905
  Transmission Date: 20251021
  Serious: No
  Sender: DOMPE FARMACEUTICI
  Company Number: US-FARMAPROD-202408-2844

PATIENT
  Sex: Female

DRUGS (6)
  1. OXERVATE [Suspect]
     Active Substance: CENEGERMIN-BKBJ
     Indication: Neurotrophic keratopathy
     Route: 047
     Dates: start: 20240619
  2. EZETIMIBE [Concomitant]
     Active Substance: EZETIMIBE
  3. MIEBO [Concomitant]
     Active Substance: PERFLUOROHEXYLOCTANE
  4. SYSTANE HYDRATION PF [Concomitant]
  5. NEXLETOL [Concomitant]
     Active Substance: BEMPEDOIC ACID
  6. SOLIFENACIN SUCCINATE [Concomitant]
     Active Substance: SOLIFENACIN SUCCINATE

REACTIONS (2)
  - Eye pain [Unknown]
  - Ocular discomfort [Unknown]
